FAERS Safety Report 18152102 (Version 3)
Quarter: 2020Q3

REPORT INFORMATION
  Report Type: Spontaneous
  Country: DE (occurrence: DE)
  Receive Date: 20200814
  Receipt Date: 20200929
  Transmission Date: 20201103
  Serious: Yes (Death, Disabling, Congenital Anomaly, Other)
  Sender: FDA-Public Use
  Company Number: DE-TORRENT-00018091

PATIENT
  Sex: Female
  Weight: 1 kg

DRUGS (1)
  1. CITALOPRAM [Suspect]
     Active Substance: CITALOPRAM HYDROBROMIDE
     Indication: DEPRESSED MOOD
     Dosage: 20MG UNTIL SSW 5, THEREAFTER 10 MG
     Route: 064
     Dates: start: 2017

REACTIONS (9)
  - Atrioventricular septal defect [Fatal]
  - Cornelia de Lange syndrome [Fatal]
  - Single umbilical artery [Fatal]
  - Aorta hypoplasia [Fatal]
  - Foetal exposure during pregnancy [Unknown]
  - Pulmonary function test abnormal [Fatal]
  - Cerebellar hypoplasia [Fatal]
  - Foetal growth restriction [Fatal]
  - Pyelocaliectasis [Fatal]
